FAERS Safety Report 25764128 (Version 1)
Quarter: 2025Q3

REPORT INFORMATION
  Report Type: Spontaneous
  Country: JP (occurrence: JP)
  Receive Date: 20250905
  Receipt Date: 20250905
  Transmission Date: 20251021
  Serious: Yes (Hospitalization)
  Sender: MERCK SHARP & DOHME LLC
  Company Number: JP-009507513-2324666

PATIENT
  Age: 78 Year
  Sex: Male
  Weight: 61 kg

DRUGS (17)
  1. KEYTRUDA [Suspect]
     Active Substance: PEMBROLIZUMAB
     Indication: Renal cell carcinoma
     Route: 041
     Dates: start: 20250130, end: 20250605
  2. KEYTRUDA [Suspect]
     Active Substance: PEMBROLIZUMAB
     Indication: Renal cell carcinoma
     Route: 041
     Dates: start: 20240925, end: 20250109
  3. LENVATINIB MESYLATE [Concomitant]
     Active Substance: LENVATINIB MESYLATE
     Indication: Renal cell carcinoma
  4. ENALAPRIL MALEATE [Concomitant]
     Active Substance: ENALAPRIL MALEATE
  5. Mitiglinide calcium orally disintegrating tablets [Concomitant]
  6. LEVOTHYROXINE SODIUM [Concomitant]
     Active Substance: LEVOTHYROXINE SODIUM
  7. SENNOSIDES [Concomitant]
     Active Substance: SENNOSIDES
  8. PRAVASTATIN SODIUM [Concomitant]
     Active Substance: PRAVASTATIN SODIUM
  9. Magnesium oxide tablets [Concomitant]
  10. Silodosin orally disintegrating tablets [Concomitant]
  11. Rafutidine tablets [Concomitant]
  12. Cilnidipine tablets [Concomitant]
  13. ATENOLOL [Concomitant]
     Active Substance: ATENOLOL
  14. Teneligliptin hydrobromide hydrate tablets [Concomitant]
  15. Heparinoid oily cream [Concomitant]
  16. Rupatadine fumarate tablets [Concomitant]
  17. BETAMETHASONE VALERATE [Concomitant]
     Active Substance: BETAMETHASONE VALERATE

REACTIONS (1)
  - Adrenocorticotropic hormone deficiency [Recovered/Resolved]

NARRATIVE: CASE EVENT DATE: 20250625
